FAERS Safety Report 7430600-6 (Version None)
Quarter: 2011Q2

REPORT INFORMATION
  Report Type: 
  Country: None (occurrence: None)
  Receive Date: 20110421
  Receipt Date: 20101008
  Transmission Date: 20111010
  Serious: No
  Sender: FDA-Public Use
  Company Number: US-ASTRAZENECA-2010SE48070

PATIENT
  Sex: Male

DRUGS (7)
  1. TOPROL-XL [Suspect]
     Route: 048
  2. WELLBUTRIN SR [Concomitant]
  3. CRESTOR [Concomitant]
  4. NORVASC [Concomitant]
  5. NITROGLYCERIN [Concomitant]
     Dosage: PRN
  6. VROVR [Concomitant]
  7. ASPIRIN [Concomitant]

REACTIONS (1)
  - DRUG HYPERSENSITIVITY [None]
